FAERS Safety Report 9587256 (Version 4)
Quarter: 2013Q4

REPORT INFORMATION
  Report Type: Spontaneous
  Country: US (occurrence: US)
  Receive Date: 20131003
  Receipt Date: 20131014
  Transmission Date: 20140711
  Serious: Yes (Death, Hospitalization, Other)
  Sender: FDA-Public Use
  Company Number: US-GILEAD-2013-0084539

PATIENT
  Age: 76 Year
  Sex: Female

DRUGS (3)
  1. LETAIRIS [Suspect]
     Indication: PRODUCT USED FOR UNKNOWN INDICATION
     Dosage: 10 MG, QD
     Dates: start: 20130626
  2. TYVASO [Suspect]
     Indication: COR PULMONALE CHRONIC
     Dosage: 4 DF, QD
     Route: 055
     Dates: start: 20130917, end: 2013
  3. ADCIRCA [Concomitant]
     Indication: PRODUCT USED FOR UNKNOWN INDICATION

REACTIONS (6)
  - Death [Fatal]
  - Hepatic function abnormal [Unknown]
  - Hepatic failure [Unknown]
  - Renal failure [Unknown]
  - Unevaluable event [Unknown]
  - Pneumonia [Unknown]
